FAERS Safety Report 10174806 (Version 2)
Quarter: 2014Q2

REPORT INFORMATION
  Report Type: Spontaneous
  Country: FR (occurrence: FR)
  Receive Date: 20140515
  Receipt Date: 20140515
  Transmission Date: 20141212
  Serious: Yes (Hospitalization, Other)
  Sender: FDA-Public Use
  Company Number: FR-ROCHE-1369009

PATIENT
  Age: 60 Year
  Sex: Male
  Weight: 90 kg

DRUGS (2)
  1. APRANAX [Suspect]
     Indication: BACK PAIN
     Route: 048
     Dates: start: 20140215
  2. MIOREL (FRANCE) [Concomitant]
     Indication: BACK PAIN
     Route: 048
     Dates: start: 20140215

REACTIONS (4)
  - Cutaneous vasculitis [Recovering/Resolving]
  - Ischaemic cardiomyopathy [Unknown]
  - Gout [Unknown]
  - Dry skin [Not Recovered/Not Resolved]
